FAERS Safety Report 23944965 (Version 1)
Quarter: 2024Q2

REPORT INFORMATION
  Report Type: Spontaneous
  Country: NO (occurrence: NO)
  Receive Date: 20240606
  Receipt Date: 20240606
  Transmission Date: 20240716
  Serious: Yes (Hospitalization)
  Sender: FDA-Public Use
  Company Number: None

PATIENT
  Age: 50 Year
  Sex: Male

DRUGS (8)
  1. JARDIANCE [Suspect]
     Active Substance: EMPAGLIFLOZIN
     Indication: Type 2 diabetes mellitus
     Dosage: USED FOR MORE THAN 3 YEARS
     Route: 048
  2. OZEMPIC [Suspect]
     Active Substance: SEMAGLUTIDE
     Indication: Type 2 diabetes mellitus
     Dates: start: 20230330
  3. MESALAMINE [Concomitant]
     Active Substance: MESALAMINE
     Indication: Proctitis ulcerative
     Dosage: 4 TABLETS IN THE MORNING UNTIL CONSULTATION?UNIT DOSE 4
     Dates: start: 20240427, end: 20240507
  4. Salofalk [Concomitant]
     Indication: Proctitis ulcerative
     Dates: start: 20240229
  5. GLIMEPIRID TEVA [Concomitant]
     Indication: Type 2 diabetes mellitus
  6. ATORVASTATIN XIROMED [Concomitant]
     Indication: Hypercholesterolaemia
  7. PENTASA [Concomitant]
     Active Substance: MESALAMINE
     Indication: Proctitis ulcerative
     Dates: start: 20240427
  8. CREON [Concomitant]
     Active Substance: PANCRELIPASE AMYLASE\PANCRELIPASE LIPASE\PANCRELIPASE PROTEASE
     Indication: Pancreatic failure
     Dosage: 1-3 CAPSULES BEFORE EVERY MEAL

REACTIONS (2)
  - Colitis [Recovering/Resolving]
  - Euglycaemic diabetic ketoacidosis [Recovering/Resolving]

NARRATIVE: CASE EVENT DATE: 20240201
